FAERS Safety Report 9527775 (Version 1)
Quarter: 2013Q3

REPORT INFORMATION
  Report Type: Spontaneous
  Country: US (occurrence: None)
  Receive Date: 20130913
  Receipt Date: 20130913
  Transmission Date: 20140515
  Serious: Yes (Other)
  Sender: FDA-Public Use
  Company Number: INT_00290_2013

PATIENT
  Sex: Male
  Weight: 104 kg

DRUGS (6)
  1. CEFAZOLIN [Suspect]
     Indication: ANTIBIOTIC PROPHYLAXIS
     Route: 042
  2. ROCURONIUM 50 MG [Suspect]
     Indication: HYPOTONIA
  3. FENTANYL [Concomitant]
  4. PROPOFOL [Concomitant]
  5. DESFLURANE [Concomitant]
  6. VERSED [Concomitant]

REACTIONS (6)
  - Anaphylactic shock [None]
  - Sinus tachycardia [None]
  - Nodal rhythm [None]
  - Metabolic acidosis [None]
  - Propofol infusion syndrome [None]
  - Procedural complication [None]
